FAERS Safety Report 24028423 (Version 1)
Quarter: 2024Q2

REPORT INFORMATION
  Report Type: Report from Study
  Country: US (occurrence: US)
  Receive Date: 20240628
  Receipt Date: 20240628
  Transmission Date: 20240716
  Serious: Yes (Other)
  Sender: FDA-Public Use
  Company Number: US-002147023-NVSC2024US133822

PATIENT
  Age: 55 Year
  Sex: Female

DRUGS (2)
  1. TAFINLAR [Suspect]
     Active Substance: DABRAFENIB MESYLATE
     Indication: Thyroid cancer
     Dosage: 75 MG, BID
     Route: 048
     Dates: start: 20240610, end: 20240621
  2. MEKINIST [Suspect]
     Active Substance: TRAMETINIB DIMETHYL SULFOXIDE
     Indication: Thyroid cancer
     Dosage: 2 MG, QD
     Route: 048
     Dates: start: 20240610, end: 20240621

REACTIONS (5)
  - Flushing [Not Recovered/Not Resolved]
  - Nausea [Not Recovered/Not Resolved]
  - Peripheral swelling [Not Recovered/Not Resolved]
  - Mass [Not Recovered/Not Resolved]
  - Joint swelling [Not Recovered/Not Resolved]

NARRATIVE: CASE EVENT DATE: 20240618
